FAERS Safety Report 25215520 (Version 2)
Quarter: 2025Q3

REPORT INFORMATION
  Report Type: Spontaneous
  Country: US (occurrence: US)
  Receive Date: 20250418
  Receipt Date: 20250721
  Transmission Date: 20251020
  Serious: No
  Sender: Phathom Pharmaceuticals
  Company Number: US-PHATHOM PHARMACEUTICALS INC.-2025PHT00523

PATIENT
  Sex: Male

DRUGS (2)
  1. VOQUEZNA [Suspect]
     Active Substance: VONOPRAZAN FUMARATE
     Dosage: 10 MG, 1X/DAY
     Route: 048
     Dates: start: 20241010
  2. VOQUEZNA [Suspect]
     Active Substance: VONOPRAZAN FUMARATE
     Route: 048

REACTIONS (3)
  - Gastric ulcer haemorrhage [Unknown]
  - Product dose omission issue [Unknown]
  - Intentional product use issue [Unknown]
